FAERS Safety Report 7321737-0 (Version None)
Quarter: 2011Q1

REPORT INFORMATION
  Report Type: 
  Country: None (occurrence: None)
  Receive Date: 20110228
  Receipt Date: 20110216
  Transmission Date: 20110831
  Serious: Yes (Hospitalization)
  Sender: FDA-Public Use
  Company Number: FR-PFIZER INC-FR-WYE-G02472808

PATIENT
  Age: 51 Year
  Sex: Male

DRUGS (9)
  1. TAZOCILLINE [Suspect]
     Indication: SEPTIC SHOCK
     Dosage: UNK
     Route: 042
     Dates: start: 20071213
  2. CANCIDAS [Suspect]
     Indication: ASPERGILLOSIS
     Dosage: 2 DF, 1X/DAY
     Route: 042
     Dates: start: 20071226, end: 20080120
  3. PREVISCAN [Concomitant]
     Dosage: UNK
     Route: 048
     Dates: start: 20080129
  4. IMOVANE [Concomitant]
     Dosage: UNK
     Route: 048
     Dates: start: 20080119
  5. AMIKACIN [Concomitant]
     Dosage: UNK
     Route: 065
     Dates: start: 20071224, end: 20071228
  6. VFEND [Suspect]
     Indication: ASPERGILLOSIS
     Dosage: 2 DF, 1X/DAY
     Route: 048
     Dates: start: 20080121
  7. TAZOCILLINE [Suspect]
     Dosage: UNK
     Route: 042
     Dates: start: 20080105, end: 20080118
  8. ENDOXAN [Suspect]
     Indication: WEGENER'S GRANULOMATOSIS
     Dosage: 1200.0 MG, 1X/DAY
     Route: 042
     Dates: start: 20080114
  9. BACTRIM [Suspect]
     Indication: INFECTION PROPHYLAXIS
     Dosage: 0.5 DF, 1X/DAY
     Route: 048
     Dates: start: 20080111, end: 20080130

REACTIONS (5)
  - GAMMA-GLUTAMYLTRANSFERASE INCREASED [None]
  - PERITONITIS [None]
  - WEGENER'S GRANULOMATOSIS [None]
  - ASPERGILLOSIS [None]
  - ALANINE AMINOTRANSFERASE INCREASED [None]
